FAERS Safety Report 8876872 (Version 1)
Quarter: 2012Q4

REPORT INFORMATION
  Report Type: 
  Country: US (occurrence: US)
  Receive Date: 20121023
  Receipt Date: 20121023
  Transmission Date: 20130627
  Serious: No
  Sender: FDA-Public Use
  Company Number: US-AMGEN-USASP2012054074

PATIENT
  Age: 78 Year
  Sex: Female
  Weight: 54.42 kg

DRUGS (8)
  1. ENBREL [Suspect]
     Indication: PRODUCT USED FOR UNKNOWN INDICATION
     Dosage: 50 mg/ml, qwk
     Route: 058
  2. CELEBREX [Concomitant]
     Dosage: 100 mg, UNK
  3. METHOTREXATE [Concomitant]
     Dosage: 2.5 mg, UNK
  4. METOPROLOL [Concomitant]
     Dosage: 100 mg, UNK
  5. NEXIUM                             /01479302/ [Concomitant]
     Dosage: 40 mg, UNK
  6. OSCAL                              /00514701/ [Concomitant]
     Dosage: 500 mg, UNK
  7. FISH OIL [Concomitant]
     Dosage: UNK
  8. FOLIC ACID [Concomitant]
     Dosage: UNK

REACTIONS (1)
  - Arthropod bite [Unknown]
